FAERS Safety Report 5398144-3 (Version None)
Quarter: 2007Q3

REPORT INFORMATION
  Report Type: 
  Country: None (occurrence: None)
  Receive Date: 20070726
  Receipt Date: 20070723
  Transmission Date: 20080115
  Serious: Yes (Other)
  Sender: FDA-Public Use
  Company Number: US-SHR-US-2007-027220

PATIENT
  Age: 28 Year
  Sex: Female
  Weight: 45.351 kg

DRUGS (1)
  1. MIRENA [Suspect]
     Dosage: 20 A?G/DAY, CONT
     Route: 015
     Dates: start: 20061101

REACTIONS (2)
  - IMPAIRED GASTRIC EMPTYING [None]
  - WEIGHT DECREASED [None]
